FAERS Safety Report 7589469-1 (Version None)
Quarter: 2011Q3

REPORT INFORMATION
  Report Type: 
  Country: None (occurrence: None)
  Receive Date: 20110705
  Receipt Date: 20110628
  Transmission Date: 20111222
  Serious: No
  Sender: FDA-Public Use
  Company Number: US-ROCHE-777585

PATIENT
  Sex: Female
  Weight: 71.8 kg

DRUGS (15)
  1. ACTEMRA [Suspect]
     Indication: RHEUMATOID ARTHRITIS
     Dosage: FORM: INFUSION
     Route: 042
     Dates: start: 20110125, end: 20110125
  2. TRAZODONE HCL [Concomitant]
     Indication: SOMNOLENCE
     Dosage: DOSE TAKEN AT HS (BEDTIME)
     Route: 048
     Dates: start: 20081028
  3. FUROSEMIDE [Concomitant]
  4. PANTOPRAZOLE [Concomitant]
  5. ACTEMRA [Suspect]
     Route: 042
     Dates: start: 20110322, end: 20110322
  6. ACTEMRA [Suspect]
     Route: 042
     Dates: start: 20110517
  7. DIAZEPAM [Concomitant]
  8. PROMETHAZINE [Concomitant]
     Indication: NAUSEA
  9. METHOTREXATE [Concomitant]
     Indication: RHEUMATOID ARTHRITIS
     Route: 030
     Dates: start: 20101020
  10. OXYCODONE HCL [Concomitant]
     Indication: PAIN
     Route: 048
     Dates: start: 20100810
  11. SIMVASTATIN [Concomitant]
     Route: 048
     Dates: start: 20110314
  12. CYCLOBENZAPRINE [Concomitant]
     Dosage: USED IF DIAZEPAM NOT WORKING
  13. ACTEMRA [Suspect]
     Route: 042
     Dates: start: 20110222, end: 20110222
  14. ACTEMRA [Suspect]
     Route: 042
     Dates: start: 20110419, end: 20110419
  15. GABAPENTIN [Concomitant]
     Route: 048
     Dates: start: 20100831

REACTIONS (1)
  - BLISTER [None]
